FAERS Safety Report 24308445 (Version 2)
Quarter: 2025Q1

REPORT INFORMATION
  Report Type: Spontaneous
  Country: CN (occurrence: CN)
  Receive Date: 20240911
  Receipt Date: 20250117
  Transmission Date: 20250409
  Serious: Yes (Hospitalization, Other)
  Sender: PFIZER
  Company Number: CN-PFIZER INC-PV202400117420

PATIENT
  Age: 71 Year
  Sex: Female

DRUGS (6)
  1. GLIPIZIDE [Suspect]
     Active Substance: GLIPIZIDE
     Indication: Diabetes mellitus
     Dosage: 5 MG, 3X/DAY
     Route: 048
     Dates: start: 20240825, end: 20240825
  2. GLIPIZIDE [Suspect]
     Active Substance: GLIPIZIDE
     Indication: Hypoglycaemia
  3. ACARBOSE [Suspect]
     Active Substance: ACARBOSE
     Indication: Diabetes mellitus
     Dosage: 50 MG, 3X/DAY
     Route: 048
     Dates: start: 20240825, end: 20240828
  4. ACARBOSE [Suspect]
     Active Substance: ACARBOSE
     Indication: Hypoglycaemia
  5. METFORMIN HYDROCHLORIDE [Suspect]
     Active Substance: METFORMIN HYDROCHLORIDE
     Indication: Diabetes mellitus
     Dosage: 0.5 G, 3X/DAY
     Route: 048
     Dates: start: 20240825, end: 20240828
  6. METFORMIN HYDROCHLORIDE [Suspect]
     Active Substance: METFORMIN HYDROCHLORIDE
     Indication: Hypoglycaemia

REACTIONS (2)
  - Diabetic coma [Recovering/Resolving]
  - Hypertension [Recovering/Resolving]

NARRATIVE: CASE EVENT DATE: 20240828
